FAERS Safety Report 12277324 (Version 1)
Quarter: 2016Q2

REPORT INFORMATION
  Report Type: Spontaneous
  Country: US (occurrence: None)
  Receive Date: 20160415
  Receipt Date: 20160415
  Transmission Date: 20160815
  Serious: No
  Sender: FDA-Public Use
  Company Number: None

PATIENT
  Age: 55 Year
  Sex: Female

DRUGS (1)
  1. HUMIRA [Suspect]
     Active Substance: ADALIMUMAB
     Indication: ARTHRALGIA
     Dosage: 07/10/2016 T0 02/15/2016??40 MG EVERY OTHER WEEK
     Route: 058
     Dates: end: 20160215

REACTIONS (3)
  - Sinusitis [None]
  - Skin infection [None]
  - Cellulitis [None]
